FAERS Safety Report 8476655-1 (Version None)
Quarter: 2012Q2

REPORT INFORMATION
  Report Type: 
  Country: None (occurrence: None)
  Receive Date: 20120628
  Receipt Date: 20120619
  Transmission Date: 20120825
  Serious: Yes (Other)
  Sender: FDA-Public Use
  Company Number: GB-TEVA-343843ISR

PATIENT
  Age: 67 Year
  Sex: Male
  Weight: 158.3 kg

DRUGS (1)
  1. METOCLOPRAMIDE [Suspect]

REACTIONS (1)
  - NIGHTMARE [None]
